FAERS Safety Report 15681808 (Version 2)
Quarter: 2019Q1

REPORT INFORMATION
  Report Type: Spontaneous
  Country: US (occurrence: US)
  Receive Date: 20181203
  Receipt Date: 20190206
  Transmission Date: 20190417
  Serious: Yes (Other)
  Sender: FDA-Public Use
  Company Number: US-AKORN PHARMACEUTICALS-2018AKN01853

PATIENT
  Sex: Male

DRUGS (1)
  1. MYORISAN [Suspect]
     Active Substance: ISOTRETINOIN
     Indication: ACNE
     Dosage: 40 MG, 1X/DAY
     Route: 048
     Dates: start: 201809, end: 201810

REACTIONS (6)
  - Feeling abnormal [Unknown]
  - Sleep disorder [Unknown]
  - Off label use [Recovered/Resolved]
  - Apathy [Not Recovered/Not Resolved]
  - Anger [Unknown]
  - Depression [Recovering/Resolving]

NARRATIVE: CASE EVENT DATE: 2018
